FAERS Safety Report 4564995-8 (Version None)
Quarter: 2005Q1

REPORT INFORMATION
  Report Type: 
  Country: None (occurrence: None)
  Receive Date: 20050126
  Receipt Date: 20050117
  Transmission Date: 20050727
  Serious: Yes (Hospitalization)
  Sender: FDA-Public Use
  Company Number: 2004110135

PATIENT
  Age: 44 Year
  Sex: Male

DRUGS (1)
  1. SULPERAZON (SULBACTAM, CEFOPERAZONE) [Suspect]
     Indication: GASTROINTESTINAL PERFORATION
     Dosage: 2 GRAM, INTRAVENOUS
     Route: 042
     Dates: start: 20041123, end: 20040101

REACTIONS (1)
  - DRUG ERUPTION [None]
